FAERS Safety Report 25419133 (Version 1)
Quarter: 2025Q2

REPORT INFORMATION
  Report Type: Spontaneous
  Country: CA (occurrence: CA)
  Receive Date: 20250610
  Receipt Date: 20250610
  Transmission Date: 20250716
  Serious: Yes (Other)
  Sender: MYLAN
  Company Number: CA-MYLANLABS-2025M1048029

PATIENT

DRUGS (6)
  1. AMLODIPINE [Interacting]
     Active Substance: AMLODIPINE BESYLATE
     Indication: Product used for unknown indication
     Dosage: 5 MILLIGRAM, QD (1 EVERY 1 DAYS)
  2. ASPIRIN [Interacting]
     Active Substance: ASPIRIN
     Indication: Product used for unknown indication
     Dosage: 80 MILLIGRAM, QD (1 EVERY 1 DAYS)
  3. CHLORTHALIDONE [Interacting]
     Active Substance: CHLORTHALIDONE
     Indication: Product used for unknown indication
     Dosage: 12.5 MILLIGRAM, QD (1 EVERY 1 DAYS)
  4. EZETIMIBE [Interacting]
     Active Substance: EZETIMIBE
     Indication: Product used for unknown indication
     Dosage: 10 MILLIGRAM, QD (1 EVERY 1 DAYS)
  5. ROSUVASTATIN [Interacting]
     Active Substance: ROSUVASTATIN
     Indication: Product used for unknown indication
     Dosage: 10 MILLIGRAM, QD (1 EVERY 1 DAYS)
  6. TELMISARTAN [Interacting]
     Active Substance: TELMISARTAN
     Indication: Product used for unknown indication
     Dosage: 80 MILLIGRAM, QD (1 EVERY 1 DAYS)

REACTIONS (3)
  - Amnesia [Unknown]
  - Muscular weakness [Unknown]
  - Drug interaction [Unknown]
